FAERS Safety Report 8189887-7 (Version None)
Quarter: 2012Q1

REPORT INFORMATION
  Report Type: 
  Country: None (occurrence: None)
  Receive Date: 20120307
  Receipt Date: 20120306
  Transmission Date: 20120608
  Serious: Yes (Hospitalization)
  Sender: FDA-Public Use
  Company Number: NL-JNJFOC-20120101546

PATIENT
  Sex: Female
  Weight: 56.02 kg

DRUGS (21)
  1. DOXORUBICIN HCL [Suspect]
     Indication: DIFFUSE LARGE B-CELL LYMPHOMA
     Route: 042
  2. VINCRISTINE [Suspect]
     Indication: DIFFUSE LARGE B-CELL LYMPHOMA
     Route: 042
     Dates: start: 20110729
  3. ENALAPRIL MALEATE [Concomitant]
     Route: 065
  4. RITUXIMAB [Suspect]
     Indication: DIFFUSE LARGE B-CELL LYMPHOMA
     Route: 042
     Dates: start: 20110729
  5. RITUXIMAB [Suspect]
     Route: 042
  6. PREDNISONE TAB [Suspect]
     Route: 048
     Dates: start: 20110729
  7. FUROSEMIDE [Concomitant]
     Route: 065
  8. FOLIUMZUUR [Concomitant]
     Route: 065
  9. BECLOMETHASONE DIPROPIONATE [Concomitant]
     Route: 065
  10. NEUPOGEN [Suspect]
     Indication: DIFFUSE LARGE B-CELL LYMPHOMA
     Route: 058
     Dates: start: 20110730
  11. CYCLOPHOSPHAMIDE [Suspect]
     Route: 042
     Dates: start: 20110729
  12. VINCRISTINE [Suspect]
     Route: 042
  13. FLUCONAZOLE [Concomitant]
     Route: 065
  14. CYCLOPHOSPHAMIDE [Suspect]
     Indication: DIFFUSE LARGE B-CELL LYMPHOMA
     Route: 042
  15. NEUPOGEN [Suspect]
     Route: 058
  16. TRAMADOL HYDROCHLORIDE [Concomitant]
     Route: 065
     Dates: start: 20110906, end: 20110917
  17. SULFASALAZINE [Concomitant]
     Route: 065
     Dates: end: 20110902
  18. PREDNISONE TAB [Suspect]
     Indication: DIFFUSE LARGE B-CELL LYMPHOMA
     Route: 048
  19. DOXORUBICIN HCL [Suspect]
     Route: 042
     Dates: start: 20110729
  20. ALENDRONIC ACID [Concomitant]
     Route: 065
  21. NITROFURANTOIN [Concomitant]
     Route: 065
     Dates: start: 20110909, end: 20110917

REACTIONS (2)
  - UROSEPSIS [None]
  - PSEUDOMONAS INFECTION [None]
